FAERS Safety Report 5126884-X (Version None)
Quarter: 2006Q4

REPORT INFORMATION
  Report Type: 
  Country: None (occurrence: None)
  Receive Date: 20060830
  Receipt Date: 20060523
  Transmission Date: 20070319
  Serious: Yes (Other)
  Sender: FDA-Public Use
  Company Number: USA040773868

PATIENT
  Age: 20 Year
  Sex: Female
  Weight: 45.8 kg

DRUGS (18)
  1. ZYPREXA [Suspect]
     Indication: BIPOLAR I DISORDER
     Dosage: SEE IMAGE
     Route: 048
     Dates: start: 20021206, end: 20030123
  2. ZYPREXA [Suspect]
     Indication: BIPOLAR I DISORDER
     Dosage: SEE IMAGE
     Route: 048
     Dates: start: 20030124, end: 20030224
  3. ZYPREXA [Suspect]
     Indication: BIPOLAR I DISORDER
     Dosage: SEE IMAGE
     Route: 048
     Dates: start: 20040101
  4. SYMBYAX [Suspect]
     Indication: BIPOLAR I DISORDER
     Dosage: DAILY (1/D),ORAL
     Route: 048
     Dates: start: 20040130
  5. PROZAC [Suspect]
     Indication: BIPOLAR I DISORDER
     Dosage: 60 MG, DAILY (1/D)
  6. EFFEXOR [Concomitant]
  7. ALLEGRA-D /01367401/ (FEXOFENADINE HYDROCHLORIDE, PSEUDOEPHEDRINE HYDR [Concomitant]
  8. BUSPAR /AUS/ (BUSPIRONE HYDROCHLORIDE) [Concomitant]
  9. PROVENTIL /USA/ (SALBUTAMOL SULFATE) [Concomitant]
  10. YASMIN /SWE/ (DROSPIRENONE, ETHINYLESTRADIOL) [Concomitant]
  11. NAPROXEN [Concomitant]
  12. NEXIUM [Concomitant]
  13. TOPMAX /AUS/ (TOPIRAMATE) [Concomitant]
  14. DEPAKOTE (VALPORATE SEMISODIUM) [Concomitant]
  15. HYDROXYZINE PAMOATE [Concomitant]
  16. LEXAPRO /USA/ (ESCITALOPRAM) [Concomitant]
  17. SINGULAIR [Concomitant]
  18. AXID [Concomitant]

REACTIONS (7)
  - ABDOMINAL DISCOMFORT [None]
  - DIABETES MELLITUS NON-INSULIN-DEPENDENT [None]
  - FOOD CRAVING [None]
  - OBESITY [None]
  - OVARIAN CYST [None]
  - POLYDIPSIA [None]
  - WEIGHT INCREASED [None]
